FAERS Safety Report 19404014 (Version 3)
Quarter: 2021Q3

REPORT INFORMATION
  Report Type: Spontaneous
  Country: US (occurrence: US)
  Receive Date: 20210611
  Receipt Date: 20210804
  Transmission Date: 20211014
  Serious: No
  Sender: FDA-Public Use
  Company Number: US-BIOVITRUM-2021US5111

PATIENT
  Age: 57 Year
  Sex: Female

DRUGS (9)
  1. MVI [Concomitant]
     Active Substance: VITAMINS
  2. AMLODIPINE [Concomitant]
     Active Substance: AMLODIPINE BESYLATE
  3. PANTOPRAZOLE [Concomitant]
     Active Substance: PANTOPRAZOLE
  4. PREDNISONE. [Concomitant]
     Active Substance: PREDNISONE
     Dosage: WHEENING OFF
  5. KINERET [Suspect]
     Active Substance: ANAKINRA
     Indication: PERICARDITIS
     Route: 058
     Dates: start: 202012
  6. OTEZLA [Concomitant]
     Active Substance: APREMILAST
     Indication: PSORIASIS
  7. CORTIZINE [Concomitant]
  8. HCTZ [Concomitant]
     Active Substance: HYDROCHLOROTHIAZIDE
  9. COLCHICINE. [Concomitant]
     Active Substance: COLCHICINE

REACTIONS (3)
  - Blood triglycerides increased [Unknown]
  - Off label use [Not Recovered/Not Resolved]
  - Blood cholesterol increased [Recovering/Resolving]

NARRATIVE: CASE EVENT DATE: 202012
